FAERS Safety Report 17289887 (Version 1)
Quarter: 2020Q1

REPORT INFORMATION
  Report Type: Spontaneous
  Country: US (occurrence: US)
  Receive Date: 20200120
  Receipt Date: 20200120
  Transmission Date: 20200409
  Serious: No
  Sender: FDA-Public Use
  Company Number: US-GE HEALTHCARE LIFE SCIENCES-2019CSU003005

PATIENT
  Sex: Male

DRUGS (4)
  1. OMNISCAN [Suspect]
     Active Substance: GADODIAMIDE
     Indication: MAGNETIC RESONANCE IMAGING
     Dosage: UNK UNK, SINGLE
     Route: 065
     Dates: start: 20161028, end: 20161028
  2. OMNISCAN [Suspect]
     Active Substance: GADODIAMIDE
     Indication: PRODUCT USED FOR UNKNOWN INDICATION
     Dosage: UNK, SINGLE
     Route: 065
     Dates: start: 20170119, end: 20170119
  3. OMNISCAN [Suspect]
     Active Substance: GADODIAMIDE
     Dosage: UNK, SINGLE
     Route: 065
     Dates: start: 20170120, end: 20170120
  4. OMNISCAN [Suspect]
     Active Substance: GADODIAMIDE
     Indication: ANGIOGRAM
     Dosage: UNK, SINGLE
     Route: 065
     Dates: start: 20170114, end: 20170114

REACTIONS (1)
  - Urine analysis abnormal [Unknown]

NARRATIVE: CASE EVENT DATE: 20181001
